FAERS Safety Report 4389880-6 (Version None)
Quarter: 2004Q2

REPORT INFORMATION
  Report Type: 
  Country: None (occurrence: None)
  Receive Date: 20040630
  Receipt Date: 20040615
  Transmission Date: 20050107
  Serious: Yes (Other)
  Sender: FDA-Public Use
  Company Number: US-JNJFOC-20040604323

PATIENT
  Age: 40 Year
  Sex: Female
  Weight: 115.6672 kg

DRUGS (3)
  1. REMICADE (INFLIXIMAB, RECOMBINANT) LYOPHILIZED POWDER [Suspect]
     Indication: CROHN'S DISEASE
     Dosage: 5 MG/KG, INTRAVENOUS
     Route: 042
     Dates: start: 20010101
  2. STEROIDS (CORTICOSTEROID NOS) [Concomitant]
  3. METHOTREXATE SODIUM [Concomitant]

REACTIONS (2)
  - CROHN'S DISEASE [None]
  - RENAL CELL CARCINOMA STAGE UNSPECIFIED [None]
